FAERS Safety Report 8600870-7 (Version None)
Quarter: 2012Q3

REPORT INFORMATION
  Report Type: 
  Country: None (occurrence: None)
  Receive Date: 20120817
  Receipt Date: 20091025
  Transmission Date: 20120928
  Serious: Yes (Other)
  Sender: FDA-Public Use
  Company Number: CO-PFIZER INC-2012199649

PATIENT
  Age: 71 Year
  Sex: Male

DRUGS (3)
  1. LIPITOR [Suspect]
     Dosage: 10 MG, 1X/DAY
     Route: 048
  2. AMLODIPINE [Concomitant]
     Dosage: 5 MG, 1X/DAY
  3. LOSARTAN [Concomitant]
     Dosage: 50 MG, 1X/DAY

REACTIONS (1)
  - HYPERTENSIVE EMERGENCY [None]
